FAERS Safety Report 24176075 (Version 1)
Quarter: 2024Q3

REPORT INFORMATION
  Report Type: Spontaneous
  Country: US (occurrence: US)
  Receive Date: 20240806
  Receipt Date: 20240806
  Transmission Date: 20241016
  Serious: No
  Sender: BIONPHARMA
  Company Number: US-Bion-013578

PATIENT
  Age: 76 Year
  Sex: Male

DRUGS (1)
  1. CALAMINE LOTION [Suspect]
     Active Substance: CALAMINE LOTION
     Indication: Product used for unknown indication
     Dates: start: 202407

REACTIONS (1)
  - Drug ineffective [Not Recovered/Not Resolved]
